FAERS Safety Report 23485698 (Version 1)
Quarter: 2024Q1

REPORT INFORMATION
  Report Type: Report from Study
  Country: US (occurrence: None)
  Receive Date: 20240206
  Receipt Date: 20240206
  Transmission Date: 20240410
  Serious: Yes (Other)
  Sender: FDA-Public Use
  Company Number: 2024A023641

PATIENT
  Sex: Male
  Weight: 88.9 kg

DRUGS (4)
  1. CALQUENCE [Suspect]
     Active Substance: ACALABRUTINIB
     Indication: Chronic lymphocytic leukaemia
     Route: 048
  2. LEVOFLOXACIN [Concomitant]
     Active Substance: LEVOFLOXACIN
  3. ACYCLOVIR [Concomitant]
     Active Substance: ACYCLOVIR
  4. LINZESS [Concomitant]
     Active Substance: LINACLOTIDE

REACTIONS (1)
  - Chronic kidney disease [Unknown]
